FAERS Safety Report 9689101 (Version 1)
Quarter: 2013Q4

REPORT INFORMATION
  Report Type: Spontaneous
  Country: US (occurrence: None)
  Receive Date: 20131113
  Receipt Date: 20131113
  Transmission Date: 20140711
  Serious: Yes (Other)
  Sender: FDA-Public Use
  Company Number: CIO13066362

PATIENT
  Age: 23 Year
  Sex: Male

DRUGS (4)
  1. ZZZQUIL NIGHTIME SLEEP-AID, WARMING BERRY FLAVOR [Suspect]
  2. ALLEGRA D (FEXOFENADINE HYDROCHLORIDE, PSUEDOPHEDRINE HYDROCHLORIDE)) [Concomitant]
  3. PROZAC/00724401/ (FLUOXETINE) [Concomitant]
  4. SUBOXONE/01687501/(BUPRENOPHINE, NALOXONE) [Concomitant]

REACTIONS (2)
  - Drug abuse [None]
  - Hyperhidrosis [None]
